FAERS Safety Report 16023040 (Version 1)
Quarter: 2019Q1

REPORT INFORMATION
  Report Type: Spontaneous
  Country: US (occurrence: US)
  Receive Date: 20190301
  Receipt Date: 20190301
  Transmission Date: 20190418
  Serious: No
  Sender: FDA-Public Use
  Company Number: US-GLAXOSMITHKLINE-US2019033144

PATIENT
  Sex: Female

DRUGS (1)
  1. NICODERM CQ [Suspect]
     Active Substance: NICOTINE
     Indication: DRUG WITHDRAWAL MAINTENANCE THERAPY
     Dosage: 7 MG, QD
     Route: 062

REACTIONS (4)
  - Abnormal dreams [Recovering/Resolving]
  - Application site irritation [Recovering/Resolving]
  - Insomnia [Recovering/Resolving]
  - Contraindicated product administered [Unknown]
